FAERS Safety Report 12770359 (Version 1)
Quarter: 2016Q3

REPORT INFORMATION
  Report Type: Spontaneous
  Country: US (occurrence: US)
  Receive Date: 20160922
  Receipt Date: 20160922
  Transmission Date: 20161109
  Serious: No
  Sender: FDA-Public Use
  Company Number: US-DRREDDYS-DRL/USA/16/0079876

PATIENT
  Age: 40 Year
  Sex: Female
  Weight: 47.6 kg

DRUGS (1)
  1. FLUCONAZOLE 200 MG GENERIC [Suspect]
     Active Substance: FLUCONAZOLE
     Indication: FUNGAL INFECTION
     Route: 048
     Dates: start: 20160419, end: 20160514

REACTIONS (2)
  - Constipation [Recovered/Resolved]
  - Abdominal distension [Recovered/Resolved]
